FAERS Safety Report 16489644 (Version 1)
Quarter: 2019Q2

REPORT INFORMATION
  Report Type: Spontaneous
  Country: US (occurrence: US)
  Receive Date: 20190628
  Receipt Date: 20190628
  Transmission Date: 20190711
  Serious: No
  Sender: FDA-Public Use
  Company Number: US-ACCORD-070867

PATIENT
  Age: 51 Year
  Sex: Male
  Weight: 99.79 kg

DRUGS (1)
  1. CLONAZEPAM ACCORD [Suspect]
     Active Substance: CLONAZEPAM
     Indication: EPILEPSY
     Dosage: 1MG EVERY 8HR, STARTED ABOUT A YEAR AGO
     Route: 048

REACTIONS (6)
  - Dizziness [Unknown]
  - Therapeutic product effect incomplete [Unknown]
  - Photosensitivity reaction [Unknown]
  - Aura [Unknown]
  - Parosmia [Unknown]
  - Product substitution issue [Unknown]
